FAERS Safety Report 21931974 (Version 1)
Quarter: 2023Q1

REPORT INFORMATION
  Report Type: Report from Study
  Country: US (occurrence: US)
  Receive Date: 20230131
  Receipt Date: 20230131
  Transmission Date: 20230417
  Serious: Yes (Hospitalization)
  Sender: FDA-Public Use
  Company Number: US-EXELIXIS-XL18423060245

PATIENT

DRUGS (12)
  1. CABOZANTINIB [Suspect]
     Active Substance: CABOZANTINIB
     Indication: Gallbladder cancer
     Dosage: 40 MG, QD
     Route: 048
     Dates: start: 20221208, end: 20221226
  2. PAMIPARIB [Suspect]
     Active Substance: PAMIPARIB
     Indication: Gallbladder cancer
     Dosage: 40 MG, BID
     Route: 048
     Dates: start: 20221208, end: 20221226
  3. VITAMIN D3 [Concomitant]
     Active Substance: CHOLECALCIFEROL
  4. ELIQUIS [Concomitant]
     Active Substance: APIXABAN
  5. PEPCID [Concomitant]
     Active Substance: FAMOTIDINE
  6. FOLVITE [Concomitant]
     Active Substance: FOLIC ACID
  7. XALATAN [Concomitant]
     Active Substance: LATANOPROST
  8. EMLA [Concomitant]
     Active Substance: LIDOCAINE\PRILOCAINE
  9. ZESTRIL [Concomitant]
     Active Substance: LISINOPRIL
  10. ZOFRAN [Concomitant]
     Active Substance: ONDANSETRON HYDROCHLORIDE
  11. TIMOPTIC [Concomitant]
     Active Substance: TIMOLOL MALEATE
  12. DESYREL [Concomitant]
     Active Substance: TRAZODONE HYDROCHLORIDE

REACTIONS (3)
  - Fall [Recovering/Resolving]
  - Subdural haematoma [Recovering/Resolving]
  - Thrombocytopenia [Recovering/Resolving]

NARRATIVE: CASE EVENT DATE: 20221226
